FAERS Safety Report 26205629 (Version 1)
Quarter: 2025Q4

REPORT INFORMATION
  Report Type: Report from Study
  Country: US (occurrence: US)
  Receive Date: 20251229
  Receipt Date: 20251229
  Transmission Date: 20260117
  Serious: Yes (Other)
  Sender: ABBVIE
  Company Number: US-ABBVIE-6607733

PATIENT
  Age: 78 Year
  Sex: Male

DRUGS (1)
  1. VYALEV [Suspect]
     Active Substance: FOSCARBIDOPA\FOSLEVODOPA
     Indication: Parkinson^s disease
     Route: 058
     Dates: start: 20250127

REACTIONS (8)
  - Unresponsive to stimuli [Recovering/Resolving]
  - Muscle rigidity [Recovering/Resolving]
  - Tremor [Not Recovered/Not Resolved]
  - Catheter site inflammation [Not Recovered/Not Resolved]
  - Dyskinesia [Recovering/Resolving]
  - Hypertension [Not Recovered/Not Resolved]
  - Catheter site erythema [Not Recovered/Not Resolved]
  - Blood pressure abnormal [Unknown]

NARRATIVE: CASE EVENT DATE: 20250101
